FAERS Safety Report 14734408 (Version 2)
Quarter: 2018Q3

REPORT INFORMATION
  Report Type: Report from Study
  Country: US (occurrence: US)
  Receive Date: 20180409
  Receipt Date: 20180712
  Transmission Date: 20181010
  Serious: Yes (Hospitalization, Other)
  Sender: FDA-Public Use
  Company Number: US-BAYER-2018-063962

PATIENT
  Age: 73 Year
  Sex: Female

DRUGS (11)
  1. ACETYLSALICYLIC ACID({=100 MG) [Suspect]
     Active Substance: ASPIRIN
     Dosage: UNK
     Dates: end: 201803
  2. BUDESONIDE. [Concomitant]
     Active Substance: BUDESONIDE
     Dosage: UNK UNK, BID
  3. ADEMPAS [Suspect]
     Active Substance: RIOCIGUAT
     Indication: PULMONARY ARTERIAL HYPERTENSION
     Dosage: 1.5 MG, TID
     Route: 048
     Dates: start: 20180307, end: 201803
  4. ALBUTEROL. [Concomitant]
     Active Substance: ALBUTEROL
     Dosage: UNK
  5. FUROSEMIDE. [Concomitant]
     Active Substance: FUROSEMIDE
     Dosage: 20 MG, QD
  6. OMEPRAZOLE. [Concomitant]
     Active Substance: OMEPRAZOLE
     Dosage: 20 MG, BID
  7. IBUPROFEN. [Suspect]
     Active Substance: IBUPROFEN
     Dosage: UNK
     Dates: end: 201803
  8. KCL [Concomitant]
     Active Substance: POTASSIUM CHLORIDE
     Dosage: UNK
  9. ADEMPAS [Suspect]
     Active Substance: RIOCIGUAT
     Indication: PULMONARY ARTERIAL HYPERTENSION
     Dosage: UNK
  10. ADEMPAS [Suspect]
     Active Substance: RIOCIGUAT
     Indication: PULMONARY ARTERIAL HYPERTENSION
     Dosage: 1 MG, TID
     Route: 048
  11. ADVAIR HFA [Concomitant]
     Active Substance: FLUTICASONE PROPIONATE\SALMETEROL XINAFOATE
     Dosage: 1 PUFF(S), BID

REACTIONS (19)
  - Asthma [None]
  - Oesophageal ulcer [None]
  - Respiratory failure [None]
  - Oesophageal haemorrhage [None]
  - Dyspnoea [None]
  - Wheezing [Not Recovered/Not Resolved]
  - Oedema peripheral [None]
  - Faeces discoloured [None]
  - Heart rate increased [None]
  - Gastrointestinal haemorrhage [None]
  - Oxygen saturation decreased [Recovering/Resolving]
  - Chest pain [Recovered/Resolved]
  - Cough [Recovered/Resolved]
  - Renal impairment [None]
  - Sleep apnoea syndrome [Recovering/Resolving]
  - Abdominal pain upper [None]
  - Haemorrhage [None]
  - Dyspnoea exertional [Recovering/Resolving]
  - Gastrooesophageal reflux disease [None]

NARRATIVE: CASE EVENT DATE: 2018
